FAERS Safety Report 8060851-1 (Version None)
Quarter: 2012Q1

REPORT INFORMATION
  Report Type: 
  Country: None (occurrence: None)
  Receive Date: 20120120
  Receipt Date: 20120113
  Transmission Date: 20120608
  Serious: Yes (Other)
  Sender: FDA-Public Use
  Company Number: HU-PFIZER INC-2012012507

PATIENT
  Age: 59 Year
  Sex: Female
  Weight: 80 kg

DRUGS (1)
  1. LYRICA [Suspect]
     Dosage: 150 MG, 2X/DAY
     Dates: start: 20110401

REACTIONS (3)
  - HYPOAESTHESIA [None]
  - PERIPHERAL COLDNESS [None]
  - FEELING COLD [None]
